FAERS Safety Report 5397400-2 (Version None)
Quarter: 2007Q3

REPORT INFORMATION
  Report Type: 
  Country: None (occurrence: None)
  Receive Date: 20070726
  Receipt Date: 20070720
  Transmission Date: 20080115
  Serious: Yes (Hospitalization)
  Sender: FDA-Public Use
  Company Number: PHBS2007CH12301

PATIENT
  Age: 85 Year
  Sex: Female

DRUGS (14)
  1. SANDIMMUNE [Suspect]
     Indication: RENAL TRANSPLANT
     Dosage: 125 MG/D
     Route: 065
     Dates: start: 19950101
  2. CIPRALEX [Suspect]
     Indication: DEPRESSION
     Dosage: 10 MG/D
     Route: 065
     Dates: start: 20061001, end: 20070326
  3. CIPRALEX [Suspect]
     Dosage: 15 MG
     Route: 065
     Dates: start: 20070405, end: 20070406
  4. CEFUROXIME AXETIL [Suspect]
     Route: 065
     Dates: start: 20070309, end: 20070319
  5. IMUREK [Concomitant]
     Indication: RENAL TRANSPLANT
     Dosage: 75 MG/D
     Dates: start: 19950101
  6. PERFALGAN [Concomitant]
     Dosage: 1 G/D
     Route: 042
     Dates: start: 20070325, end: 20070326
  7. VANCOMYCIN HCL [Concomitant]
     Dosage: 1500 MG/D
     Route: 042
     Dates: start: 20070328, end: 20070402
  8. ROCEPHIN [Concomitant]
     Dosage: 2000 MG/D
     Route: 042
     Dates: start: 20070326, end: 20070327
  9. MEMANTINE HCL [Concomitant]
     Dosage: 20 MG/D
     Dates: start: 20050101, end: 20070326
  10. HALDOL [Concomitant]
     Dosage: UNK, PRN
  11. LORAZEPAM [Concomitant]
     Dosage: 1.5 MG/D
     Dates: start: 20060101, end: 20070402
  12. ROCALTROL [Concomitant]
     Dosage: 0.25 UG/D
  13. CALCIUM CHLORIDE [Concomitant]
  14. SEROQUEL [Concomitant]
     Dosage: 12.5 MG/D
     Dates: start: 20070403, end: 20070412

REACTIONS (19)
  - AGITATION [None]
  - AKINESIA [None]
  - ANTIDEPRESSANT DRUG LEVEL INCREASED [None]
  - ANXIETY [None]
  - C-REACTIVE PROTEIN INCREASED [None]
  - CLONUS [None]
  - CONFUSIONAL STATE [None]
  - DISORIENTATION [None]
  - DRUG INTERACTION [None]
  - EXTRAPYRAMIDAL DISORDER [None]
  - FALL [None]
  - GENERAL PHYSICAL HEALTH DETERIORATION [None]
  - HEART RATE INCREASED [None]
  - HYPERREFLEXIA [None]
  - MUSCLE RIGIDITY [None]
  - PERSONALITY CHANGE [None]
  - PYREXIA [None]
  - SEROTONIN SYNDROME [None]
  - URINARY TRACT INFECTION [None]
